FAERS Safety Report 8822884 (Version 1)
Quarter: 2012Q4

REPORT INFORMATION
  Report Type: 
  Country: CN (occurrence: CN)
  Receive Date: 20121003
  Receipt Date: 20121003
  Transmission Date: 20130627
  Serious: Yes (Other)
  Sender: FDA-Public Use
  Company Number: CN-JNJFOC-20120913454

PATIENT
  Age: 6 Year
  Sex: Male

DRUGS (7)
  1. TYLENOL [Suspect]
     Indication: ANTIPYRESIS
     Route: 048
     Dates: start: 20090704, end: 20090709
  2. TYLENOL [Suspect]
     Indication: ANALGESIC THERAPY
     Route: 048
     Dates: start: 20090704, end: 20090709
  3. TYLENOL [Suspect]
     Indication: UPPER RESPIRATORY TRACT INFECTION
     Route: 048
     Dates: start: 20090704, end: 20090709
  4. CEFOPERAZONE SODIUM\SULBACTAM [Suspect]
     Indication: UPPER RESPIRATORY TRACT INFECTION
     Route: 065
     Dates: start: 20090704
  5. GLUCOSE, LIQUID\UNSPECIFIED INGREDIENT [Suspect]
     Indication: UPPER RESPIRATORY TRACT INFECTION
     Route: 065
     Dates: start: 20090704
  6. GLUCOSE, LIQUID [Suspect]
     Indication: UPPER RESPIRATORY TRACT INFECTION
     Route: 065
     Dates: start: 20090704
  7. VIDARABINE [Suspect]
     Indication: UPPER RESPIRATORY TRACT INFECTION
     Route: 065
     Dates: start: 20090704

REACTIONS (1)
  - Erythema multiforme [Recovered/Resolved]
